FAERS Safety Report 8758740 (Version 3)
Quarter: 2012Q4

REPORT INFORMATION
  Report Type: 
  Country: NL (occurrence: NL)
  Receive Date: 20120829
  Receipt Date: 20121009
  Transmission Date: 20130627
  Serious: Yes (Other)
  Sender: FDA-Public Use
  Company Number: NL-SANOFI-AVENTIS-2012SA060283

PATIENT
  Age: 56 Year
  Sex: Female

DRUGS (3)
  1. PLAQUENIL [Suspect]
     Indication: ARTHRITIS RHEUMATOID
     Route: 048
     Dates: start: 20120201
  2. LACTULOSE [Concomitant]
  3. PROGYNOVA [Concomitant]

REACTIONS (5)
  - Haematochezia [Not Recovered/Not Resolved]
  - Irritable bowel syndrome [Recovering/Resolving]
  - Anal fissure [Unknown]
  - Abdominal pain [Recovering/Resolving]
  - Constipation [Recovering/Resolving]
